FAERS Safety Report 15299738 (Version 1)
Quarter: 2018Q3

REPORT INFORMATION
  Report Type: Spontaneous
  Country: US (occurrence: US)
  Receive Date: 20180821
  Receipt Date: 20180821
  Transmission Date: 20181010
  Serious: No
  Sender: FDA-Public Use
  Company Number: US-KAMADA LIMITED-2018US002229

PATIENT

DRUGS (20)
  1. ESZOPICLONE. [Concomitant]
     Active Substance: ESZOPICLONE
  2. ALPRAZOLAM. [Concomitant]
     Active Substance: ALPRAZOLAM
  3. GLASSIA [Suspect]
     Active Substance: .ALPHA.1-PROTEINASE INHIBITOR HUMAN
     Dosage: 300 MG, 1/WEEK
     Route: 042
     Dates: start: 20180117, end: 20180117
  4. GLASSIA [Suspect]
     Active Substance: .ALPHA.1-PROTEINASE INHIBITOR HUMAN
     Dosage: 300 MG, 1/WEEK
     Route: 042
     Dates: start: 20180214, end: 20180214
  5. SYMBICORT [Concomitant]
     Active Substance: BUDESONIDE\FORMOTEROL FUMARATE DIHYDRATE
  6. CARAFATE [Concomitant]
     Active Substance: SUCRALFATE
  7. OMEPRAZOLE. [Concomitant]
     Active Substance: OMEPRAZOLE
  8. GLASSIA [Suspect]
     Active Substance: .ALPHA.1-PROTEINASE INHIBITOR HUMAN
     Dosage: 300 MG, 1/WEEK
     Route: 042
     Dates: start: 20180124, end: 20180124
  9. GLASSIA [Suspect]
     Active Substance: .ALPHA.1-PROTEINASE INHIBITOR HUMAN
     Dosage: 300 MG, 1/WEEK
     Route: 042
     Dates: start: 20180207, end: 20180207
  10. GLASSIA [Suspect]
     Active Substance: .ALPHA.1-PROTEINASE INHIBITOR HUMAN
     Indication: ALPHA-1 ANTI-TRYPSIN DEFICIENCY
     Dosage: 300 MG, 1/WEEK
     Route: 042
     Dates: start: 20160615
  11. SPIRIVA [Concomitant]
     Active Substance: TIOTROPIUM BROMIDE MONOHYDRATE
  12. ATORVASTATIN [Concomitant]
     Active Substance: ATORVASTATIN
  13. DILTIAZEM. [Concomitant]
     Active Substance: DILTIAZEM
  14. GLASSIA [Suspect]
     Active Substance: .ALPHA.1-PROTEINASE INHIBITOR HUMAN
     Dosage: 300 MG, 1/WEEK
     Route: 042
     Dates: start: 20180131, end: 20180131
  15. GLASSIA [Suspect]
     Active Substance: .ALPHA.1-PROTEINASE INHIBITOR HUMAN
     Dosage: 300 MG, 1/WEEK
     Route: 042
     Dates: start: 20180221, end: 20180221
  16. FLONASE                            /00908302/ [Concomitant]
     Active Substance: MOMETASONE FUROATE
  17. GLASSIA [Suspect]
     Active Substance: .ALPHA.1-PROTEINASE INHIBITOR HUMAN
     Dosage: 300 MG, 1/WEEK
     Route: 042
     Dates: start: 20180103, end: 20180103
  18. GLASSIA [Suspect]
     Active Substance: .ALPHA.1-PROTEINASE INHIBITOR HUMAN
     Dosage: 300 MG, 1/WEEK
     Route: 042
     Dates: start: 20180110, end: 20180110
  19. OXYGEN. [Concomitant]
     Active Substance: OXYGEN
     Dosage: 4 L, CONTINUALLY
  20. GLASSIA [Suspect]
     Active Substance: .ALPHA.1-PROTEINASE INHIBITOR HUMAN
     Dosage: 300 MG. 1/WEEK
     Route: 042
     Dates: start: 20180228

REACTIONS (1)
  - Chest discomfort [Recovered/Resolved]

NARRATIVE: CASE EVENT DATE: 20180103
